FAERS Safety Report 7305053-9 (Version None)
Quarter: 2011Q1

REPORT INFORMATION
  Report Type: 
  Country: None (occurrence: None)
  Receive Date: 20110222
  Receipt Date: 20110215
  Transmission Date: 20110831
  Serious: Yes (Hospitalization, Other)
  Sender: FDA-Public Use
  Company Number: DE-ABBOTT-11P-062-0705566-00

PATIENT
  Age: 41 Year
  Sex: Female

DRUGS (2)
  1. HUMIRA [Suspect]
     Indication: RHEUMATOID ARTHRITIS
     Route: 058
     Dates: start: 20090101, end: 20101001
  2. HUMIRA [Suspect]
     Indication: CROHN'S DISEASE
     Dates: start: 20101101

REACTIONS (7)
  - WEIGHT DECREASED [None]
  - ABDOMINAL HERNIA [None]
  - PYELONEPHRITIS [None]
  - HAEMATURIA [None]
  - VOMITING [None]
  - ABDOMINAL PAIN [None]
  - PNEUMONIA [None]
